FAERS Safety Report 7013213-X (Version None)
Quarter: 2010Q3

REPORT INFORMATION
  Report Type: 
  Country: None (occurrence: None)
  Receive Date: 20100924
  Receipt Date: 20100915
  Transmission Date: 20110219
  Serious: Yes (Other)
  Sender: FDA-Public Use
  Company Number: US-JNJFOC-20100906971

PATIENT
  Age: 52 Year
  Sex: Female
  Weight: 89.81 kg

DRUGS (2)
  1. TOPAMAX [Suspect]
     Indication: FIBROMYALGIA
     Dosage: UNKNOWN LOW DOSE
     Route: 065
  2. TOPAMAX [Suspect]
     Indication: DEPRESSION
     Dosage: UNKNOWN LOW DOSE
     Route: 065

REACTIONS (8)
  - APHASIA [None]
  - CYST [None]
  - EYE PAIN [None]
  - FEELING ABNORMAL [None]
  - HYPERTENSION [None]
  - INSOMNIA [None]
  - TREATMENT NONCOMPLIANCE [None]
  - VISUAL IMPAIRMENT [None]
